FAERS Safety Report 9552546 (Version 2)
Quarter: 2013Q4

REPORT INFORMATION
  Report Type: Spontaneous
  Country: US (occurrence: US)
  Receive Date: 20130925
  Receipt Date: 20131010
  Transmission Date: 20140711
  Serious: No
  Sender: FDA-Public Use
  Company Number: US-PFIZER INC-2013272730

PATIENT
  Sex: Male
  Weight: 63.49 kg

DRUGS (2)
  1. ADVIL [Suspect]
     Indication: PYREXIA
     Dosage: 200 MG IN THE AFTERNOON AND 400 MG (200 MG X 2) AT NIGHT
     Dates: start: 20130920, end: 20130920
  2. ADVIL [Suspect]
     Indication: PAIN

REACTIONS (2)
  - Extra dose administered [Unknown]
  - Abdominal discomfort [Unknown]
